FAERS Safety Report 11041188 (Version 2)
Quarter: 2015Q2

REPORT INFORMATION
  Report Type: Spontaneous
  Country: US (occurrence: US)
  Receive Date: 20150416
  Receipt Date: 20150525
  Transmission Date: 20150821
  Serious: Yes (Other)
  Sender: FDA-Public Use
  Company Number: US-JNJFOC-20130501020

PATIENT
  Age: 80 Year
  Sex: Female
  Weight: 60.78 kg

DRUGS (2)
  1. XARELTO [Suspect]
     Active Substance: RIVAROXABAN
     Indication: ATRIAL FIBRILLATION
     Dosage: WITH EVENING MEALS
     Route: 048
     Dates: start: 20130319, end: 20130419
  2. XARELTO [Suspect]
     Active Substance: RIVAROXABAN
     Indication: CEREBROVASCULAR ACCIDENT PROPHYLAXIS
     Dosage: WITH EVENING MEALS
     Route: 048
     Dates: start: 20130319, end: 20130419

REACTIONS (2)
  - Gastrointestinal haemorrhage [Recovered/Resolved]
  - Ecchymosis [Recovered/Resolved]

NARRATIVE: CASE EVENT DATE: 20130415
